FAERS Safety Report 14078521 (Version 1)
Quarter: 2017Q4

REPORT INFORMATION
  Report Type: Spontaneous
  Country: US (occurrence: None)
  Receive Date: 20171012
  Receipt Date: 20171012
  Transmission Date: 20180321
  Serious: Yes (Death, Hospitalization)
  Sender: FDA-Public Use
  Company Number: None

PATIENT
  Age: 21 Year
  Sex: Male
  Weight: 144.2 kg

DRUGS (3)
  1. ONCASPAR [Suspect]
     Active Substance: PEGASPARGASE
     Dates: end: 20170824
  2. METHOTREXATE. [Suspect]
     Active Substance: METHOTREXATE
     Dates: end: 20170915
  3. VINCRISTINE SULFATE. [Suspect]
     Active Substance: VINCRISTINE SULFATE
     Dates: end: 20170824

REACTIONS (13)
  - Anxiety [None]
  - Ascites [None]
  - Scrotal oedema [None]
  - Acute respiratory failure [None]
  - Oedema peripheral [None]
  - Hepatic failure [None]
  - Hepatic cirrhosis [None]
  - Generalised oedema [None]
  - Pyrexia [None]
  - Non-alcoholic steatohepatitis [None]
  - Fluid overload [None]
  - Drug-induced liver injury [None]
  - Respiratory failure [None]

NARRATIVE: CASE EVENT DATE: 20171006
